FAERS Safety Report 21757470 (Version 1)
Quarter: 2022Q4

REPORT INFORMATION
  Report Type: Spontaneous
  Country: TW (occurrence: TW)
  Receive Date: 20221221
  Receipt Date: 20221221
  Transmission Date: 20230112
  Serious: Yes (Hospitalization, Other)
  Sender: FDA-Public Use
  Company Number: TW-PFIZER INC-PV202200122296

PATIENT
  Age: 62 Year
  Sex: Male

DRUGS (2)
  1. ENBREL [Suspect]
     Active Substance: ETANERCEPT
     Indication: Psoriatic arthropathy
     Dosage: 25 MG, BIW
     Route: 058
     Dates: start: 20120312
  2. ENBREL [Suspect]
     Active Substance: ETANERCEPT
     Dosage: 25 MG  Q4D
     Route: 058
     Dates: end: 20221212

REACTIONS (2)
  - Intervertebral disc protrusion [Not Recovered/Not Resolved]
  - Off label use [Unknown]
